FAERS Safety Report 13079424 (Version 1)
Quarter: 2017Q1

REPORT INFORMATION
  Report Type: Report from Study
  Country: SE (occurrence: SE)
  Receive Date: 20170103
  Receipt Date: 20170103
  Transmission Date: 20170428
  Serious: Yes (Other)
  Sender: FDA-Public Use
  Company Number: SE-ROCHE-1873737

PATIENT

DRUGS (2)
  1. VALGANCICLOVIR. [Suspect]
     Active Substance: VALGANCICLOVIR
     Indication: GLIOBLASTOMA
     Dosage: 450 MG 2 X 2, INITIAL 3 WEEKS
     Route: 065
  2. VALGANCICLOVIR. [Suspect]
     Active Substance: VALGANCICLOVIR
     Dosage: 450 MG 1X2
     Route: 065

REACTIONS (1)
  - Haematotoxicity [Unknown]
